FAERS Safety Report 14499037 (Version 2)
Quarter: 2018Q1

REPORT INFORMATION
  Report Type: Spontaneous
  Country: FR (occurrence: FR)
  Receive Date: 20180207
  Receipt Date: 20180324
  Transmission Date: 20180509
  Serious: Yes (Hospitalization, Other)
  Sender: FDA-Public Use
  Company Number: FR-MYLANLABS-2018M1008183

PATIENT
  Age: 69 Year
  Sex: Female

DRUGS (11)
  1. FOLINIC ACID [Suspect]
     Active Substance: LEUCOVORIN
     Dosage: REGIMEN 3
     Route: 042
  2. FLUOROURACIL. [Suspect]
     Active Substance: FLUOROURACIL
     Dosage: REGIMEN 2
     Route: 042
  3. FOLINIC ACID [Suspect]
     Active Substance: LEUCOVORIN
     Indication: COLORECTAL CANCER METASTATIC
     Dosage: UNK UNK, CYCLE REGIMEN 1
     Route: 042
     Dates: start: 20170703, end: 20170703
  4. AFLIBERCEPT [Suspect]
     Active Substance: AFLIBERCEPT
     Dosage: REGIMEN 1 CYCLE
     Route: 042
     Dates: start: 20170915, end: 20170915
  5. FLUOROURACIL. [Suspect]
     Active Substance: FLUOROURACIL
     Dosage: REGIMEN 1
     Route: 042
  6. IRINOTECAN [Suspect]
     Active Substance: IRINOTECAN
     Dosage: UNK, CYCLE REGIMEN 2
     Route: 042
     Dates: start: 20170703, end: 20170703
  7. FLUOROURACIL. [Suspect]
     Active Substance: FLUOROURACIL
     Indication: COLORECTAL CANCER METASTATIC
     Dosage: UNK UNK, CYCLE
     Route: 042
  8. FOLINIC ACID [Suspect]
     Active Substance: LEUCOVORIN
     Dosage: REGIMEN 2
     Route: 042
  9. IRINOTECAN [Suspect]
     Active Substance: IRINOTECAN
     Dosage: REGIMEN 1
     Route: 042
  10. AFLIBERCEPT [Suspect]
     Active Substance: AFLIBERCEPT
     Indication: COLORECTAL CANCER METASTATIC
     Dosage: UNK UNK, CYCLE REGIMEN 2
     Route: 042
     Dates: start: 20170703, end: 20170703
  11. IRINOTECAN [Suspect]
     Active Substance: IRINOTECAN
     Indication: COLORECTAL CANCER METASTATIC
     Dosage: REGIMEN 1
     Route: 042

REACTIONS (2)
  - Vena cava thrombosis [Recovered/Resolved]
  - Off label use [Unknown]

NARRATIVE: CASE EVENT DATE: 20170915
